FAERS Safety Report 19082811 (Version 2)
Quarter: 2021Q2

REPORT INFORMATION
  Report Type: Report from Study
  Country: AR (occurrence: CO)
  Receive Date: 20210401
  Receipt Date: 20210408
  Transmission Date: 20210717
  Serious: Yes (Hospitalization, Other)
  Sender: FDA-Public Use
  Company Number: CO-TAKEDA-CO202019714

PATIENT
  Age: 13 Year
  Sex: Male
  Weight: 40 kg

DRUGS (3)
  1. IDURSULFASE [Suspect]
     Active Substance: IDURSULFASE
     Indication: MUCOPOLYSACCHARIDOSIS II
     Dosage: 2 MILLIGRAM PER MILLILITRE, EVERY 8 DAYS
     Route: 042
     Dates: start: 20180511
  2. IDURSULFASE [Suspect]
     Active Substance: IDURSULFASE
     Dosage: 20 MILLIGRAM, 1/WEEK
     Route: 042
  3. IDURSULFASE [Suspect]
     Active Substance: IDURSULFASE
     Dosage: 21.5 MILLIGRAM, 1/WEEK
     Route: 042
     Dates: start: 20180730

REACTIONS (6)
  - Pneumonia [Recovering/Resolving]
  - Inappropriate schedule of product administration [Unknown]
  - Cough [Recovering/Resolving]
  - Weight increased [Unknown]
  - Pyrexia [Recovering/Resolving]
  - Productive cough [Recovering/Resolving]

NARRATIVE: CASE EVENT DATE: 20200610
